FAERS Safety Report 15768746 (Version 1)
Quarter: 2018Q4

REPORT INFORMATION
  Report Type: Spontaneous
  Country: TW (occurrence: TW)
  Receive Date: 20181228
  Receipt Date: 20181228
  Transmission Date: 20190205
  Serious: Yes (Other)
  Sender: FDA-Public Use
  Company Number: TW-ASTELLAS-2018US054923

PATIENT
  Age: 61 Year
  Sex: Female
  Weight: 52 kg

DRUGS (12)
  1. TACROLIMUS. [Suspect]
     Active Substance: TACROLIMUS
     Dosage: 5.5 MG DAILY DOSE, (3 / 2.5) TWICE DAILY
     Route: 065
     Dates: start: 20181011, end: 20181015
  2. TACROLIMUS. [Suspect]
     Active Substance: TACROLIMUS
     Dosage: 5.5 MG DAILY DOSE, 3 / 2.5, TWICE DAILY
     Route: 065
     Dates: start: 20181020, end: 20181021
  3. CERTICAN [Suspect]
     Active Substance: EVEROLIMUS
     Dosage: 1.25 MG DAILY DOSE, TWICE DAILY
     Route: 048
     Dates: start: 20181214
  4. ANTITHYMOCYTE IMMUNOGLOBULIN [Concomitant]
     Active Substance: THYMOCYTE IMMUNE GLOBULIN NOS
     Indication: RENAL TRANSPLANT
     Dosage: UNK UNK, UNKNOWN FREQ.
     Route: 065
     Dates: start: 20181005, end: 20181009
  5. CELLCEPT [Suspect]
     Active Substance: MYCOPHENOLATE MOFETIL\MYCOPHENOLATE MOFETIL HYDROCHLORIDE
     Dosage: 4 UNIT DOSE, TWICE DAILY
     Route: 065
     Dates: start: 20181019, end: 201810
  6. CELLCEPT [Suspect]
     Active Substance: MYCOPHENOLATE MOFETIL\MYCOPHENOLATE MOFETIL HYDROCHLORIDE
     Dosage: 100 MG DAILY DOSE, TWICE DAILY
     Route: 048
     Dates: start: 20181021, end: 2018
  7. TACROLIMUS. [Suspect]
     Active Substance: TACROLIMUS
     Indication: PROPHYLAXIS AGAINST TRANSPLANT REJECTION
     Dosage: 6 MG DAILY DOSE, TWICE DAILY
     Route: 065
     Dates: start: 20181006, end: 20181010
  8. CELLCEPT [Suspect]
     Active Substance: MYCOPHENOLATE MOFETIL\MYCOPHENOLATE MOFETIL HYDROCHLORIDE
     Indication: PROPHYLAXIS AGAINST TRANSPLANT REJECTION
     Dosage: 6 UNIT DOSE, TWICE DAILY
     Route: 065
     Dates: start: 20181006, end: 20181010
  9. CELLCEPT [Suspect]
     Active Substance: MYCOPHENOLATE MOFETIL\MYCOPHENOLATE MOFETIL HYDROCHLORIDE
     Dosage: 5 UNIT DOSE, 3 / 2, TWICE DAILY
     Route: 065
     Dates: start: 20181011, end: 20181018
  10. CELLCEPT [Suspect]
     Active Substance: MYCOPHENOLATE MOFETIL\MYCOPHENOLATE MOFETIL HYDROCHLORIDE
     Dosage: 500 MG DAILY DOSE, TWICE DAILY
     Route: 048
     Dates: start: 20181214
  11. TACROLIMUS. [Suspect]
     Active Substance: TACROLIMUS
     Dosage: 5MG DAILY DOSE, TWICE DAILY
     Route: 065
     Dates: start: 20181016, end: 20181019
  12. CERTICAN [Suspect]
     Active Substance: EVEROLIMUS
     Indication: PROPHYLAXIS AGAINST TRANSPLANT REJECTION
     Dosage: 1 MG DAILY DOSE, TWICE DAILY
     Route: 048
     Dates: start: 20181019, end: 2018

REACTIONS (5)
  - Klebsiella infection [Unknown]
  - Thrombotic microangiopathy [Unknown]
  - Renal tubular injury [Unknown]
  - Transplant rejection [Unknown]
  - Urinary tract infection bacterial [Unknown]

NARRATIVE: CASE EVENT DATE: 201810
